FAERS Safety Report 21932357 (Version 5)
Quarter: 2024Q3

REPORT INFORMATION
  Report Type: Spontaneous
  Country: BE (occurrence: BE)
  Receive Date: 20230131
  Receipt Date: 20240916
  Transmission Date: 20241017
  Serious: Yes (Death, Hospitalization, Other)
  Sender: MYLAN
  Company Number: BE-009507513-2212USA007611

PATIENT
  Age: 53 Year
  Sex: Female

DRUGS (14)
  1. TACROLIMUS [Interacting]
     Active Substance: TACROLIMUS
     Indication: Product used for unknown indication
     Dosage: UNK
     Route: 065
  2. SORAFENIB [Suspect]
     Active Substance: SORAFENIB
     Indication: Acute myeloid leukaemia
     Dosage: AS MAINTENANCE THERAPY
     Route: 065
  3. GILTERITINIB [Suspect]
     Active Substance: GILTERITINIB
     Indication: Acute myeloid leukaemia
     Dosage: AS MAINTENANCE THERAPY
     Route: 065
     Dates: start: 202203
  4. MYCOPHENOLATE MOFETIL [Suspect]
     Active Substance: MYCOPHENOLATE MOFETIL
     Indication: Product used for unknown indication
     Dosage: UNK
     Route: 065
  5. CYTARABINE [Suspect]
     Active Substance: CYTARABINE
     Indication: Acute myeloid leukaemia
     Dosage: AS MAINTENANCE THERAPY
     Route: 065
     Dates: start: 202203
  6. LETERMOVIR [Interacting]
     Active Substance: LETERMOVIR
     Indication: Antiviral prophylaxis
     Dosage: 480 MG, QD, FOR A TOTAL OF 13
     Route: 048
  7. ACYCLOVIR [Concomitant]
     Active Substance: ACYCLOVIR
     Indication: Antiviral prophylaxis
     Dosage: 200 MILLIGRAM, QD
     Route: 048
  8. ACYCLOVIR [Concomitant]
     Active Substance: ACYCLOVIR
     Indication: Prophylaxis
     Dosage: 400 MG, QD (STARTED 1 WEEK BEFORE HSCT)
     Route: 048
  9. FLUCONAZOLE [Concomitant]
     Active Substance: FLUCONAZOLE
     Indication: Product used for unknown indication
     Dosage: UNK
     Route: 065
  10. VANCOMYCIN [Concomitant]
     Active Substance: VANCOMYCIN
     Indication: Urinary tract infection
     Dosage: UNK
     Route: 065
  11. SERTRALINE [Concomitant]
     Active Substance: SERTRALINE HYDROCHLORIDE
     Indication: Product used for unknown indication
     Dosage: UNK
     Route: 065
  12. PIPERACILLIN AND TAZOBACTAM [Concomitant]
     Active Substance: PIPERACILLIN SODIUM\TAZOBACTAM SODIUM
     Indication: Urinary tract infection
     Dosage: UNK
     Route: 065
  13. LEVOTHYROXINE [Concomitant]
     Active Substance: LEVOTHYROXINE\LEVOTHYROXINE SODIUM
     Indication: Product used for unknown indication
     Dosage: UNK
     Route: 065
  14. PANTOPRAZOLE [Concomitant]
     Active Substance: PANTOPRAZOLE
     Indication: Product used for unknown indication
     Dosage: UNK
     Route: 065

REACTIONS (21)
  - Encephalopathy [Fatal]
  - Lactic acidosis [Fatal]
  - Haemoptysis [Fatal]
  - Hypoglycaemia [Fatal]
  - Hypoxia [Fatal]
  - Cardiac arrest [Fatal]
  - Status epilepticus [Fatal]
  - Drug level increased [Fatal]
  - Off label use [Fatal]
  - Mitochondrial toxicity [Unknown]
  - Heart valve incompetence [Unknown]
  - Cytokine release syndrome [Unknown]
  - Cardiotoxicity [Unknown]
  - Oliguria [Unknown]
  - Dyspnoea [Unknown]
  - Acute kidney injury [Unknown]
  - Sepsis [Unknown]
  - Drug interaction [Unknown]
  - Urinary tract infection enterococcal [Unknown]
  - Antiviral drug level above therapeutic [Unknown]
  - Immunosuppressant drug level increased [Unknown]

NARRATIVE: CASE EVENT DATE: 20220101
